FAERS Safety Report 5845042-4 (Version None)
Quarter: 2008Q3

REPORT INFORMATION
  Report Type: 
  Country: None (occurrence: None)
  Receive Date: 20080813
  Receipt Date: 20080813
  Transmission Date: 20090109
  Serious: No
  Sender: FDA-Public Use
  Company Number: None

PATIENT
  Sex: Male

DRUGS (2)
  1. CLOZAPINE [Suspect]
     Dosage: 400 MG HS PO
     Route: 048
     Dates: start: 20070101, end: 20080812
  2. CLOZAPINE [Suspect]
     Dosage: 125 MG AM PO
     Route: 048
     Dates: start: 20070101, end: 20080812

REACTIONS (1)
  - WEIGHT INCREASED [None]
